FAERS Safety Report 16772803 (Version 1)
Quarter: 2019Q3

REPORT INFORMATION
  Report Type: Spontaneous
  Country: DE (occurrence: DE)
  Receive Date: 20190904
  Receipt Date: 20190904
  Transmission Date: 20191005
  Serious: Yes (Other)
  Sender: FDA-Public Use
  Company Number: DE-MYLANLABS-2019M1082141

PATIENT
  Age: 64 Year
  Sex: Male
  Weight: 72 kg

DRUGS (1)
  1. LEVOFLOXACIN. [Suspect]
     Active Substance: LEVOFLOXACIN
     Indication: PRODUCT USED FOR UNKNOWN INDICATION
     Dosage: 6 X 1 TABLETTE TAEGLICH
     Route: 048
     Dates: start: 20180302, end: 20180308

REACTIONS (13)
  - Muscle atrophy [Recovered/Resolved with Sequelae]
  - Neck pain [Recovered/Resolved with Sequelae]
  - Intervertebral disc protrusion [Unknown]
  - Myalgia [Recovered/Resolved with Sequelae]
  - Pain in extremity [Unknown]
  - Nervous system disorder [Recovered/Resolved with Sequelae]
  - Muscular weakness [Recovered/Resolved with Sequelae]
  - Lung disorder [Recovered/Resolved with Sequelae]
  - Back pain [Recovered/Resolved with Sequelae]
  - Tendon rupture [Recovered/Resolved with Sequelae]
  - Cardiovascular disorder [Recovered/Resolved with Sequelae]
  - Peripheral swelling [Unknown]
  - Bone pain [Recovered/Resolved with Sequelae]

NARRATIVE: CASE EVENT DATE: 20180302
